FAERS Safety Report 24282031 (Version 1)
Quarter: 2024Q3

REPORT INFORMATION
  Report Type: Spontaneous
  Country: GB (occurrence: GB)
  Receive Date: 20240904
  Receipt Date: 20240904
  Transmission Date: 20241017
  Serious: Yes (Other)
  Sender: PFIZER
  Company Number: None

PATIENT
  Age: 53 Year

DRUGS (12)
  1. CARBOPLATIN [Suspect]
     Active Substance: CARBOPLATIN
     Dosage: UNK, EVERY 3 WEEKS-LAST HAD 09/04/24 FOR 4 CYCLES COMPLETED
  2. EPIRUBICIN HYDROCHLORIDE [Suspect]
     Active Substance: EPIRUBICIN HYDROCHLORIDE
     Dosage: UNK, LAST HAD 30/04/2024
  3. PACLITAXEL [Suspect]
     Active Substance: PACLITAXEL
     Dosage: UNK, WEEKLY FOR 12 CYCLES LAST HAD 30/04/24
  4. CYCLOPHOSPHAMIDE [Suspect]
     Active Substance: CYCLOPHOSPHAMIDE
     Dosage: UNK, LAST HAD 30/04/24
  5. PEMBROLIZUMAB [Suspect]
     Active Substance: PEMBROLIZUMAB
     Dosage: UNK, LAST HAD 30/04/24
  6. LEVOTHYROXINE SODIUM [Concomitant]
     Active Substance: LEVOTHYROXINE SODIUM
     Dosage: 100 UG, 1X/DAY, 2 EACH DAY AS DIRECTED EACH MORNING
  7. ONDANSETRON [Concomitant]
     Active Substance: ONDANSETRON
     Dosage: 1 DF, 2X/DAY, ONE TABLET TO BE TAKEN UP TO TWICE DAILY AS REQUIRED AS PER ONCOLOGIST
  8. PROMETHAZINE HYDROCHLORIDE [Concomitant]
     Active Substance: PROMETHAZINE HYDROCHLORIDE
     Dosage: 25 MG, ONE TO BE TAKEN AT NIGHT AS REQUIRED AS PER ONCOLOGIST
  9. BUTYLSCOPOLAMINE BROMIDE [Concomitant]
     Active Substance: BUTYLSCOPOLAMINE BROMIDE
     Dosage: 2 DF, 4X/DAY, 10 MG TWO TO BE TAKEN FOUR TIMES A DAY
  10. DOMPERIDONE [Concomitant]
     Active Substance: DOMPERIDONE
     Dosage: 1 DF, 3X/DAY, ONE TO BE TAKEN UP TO THREE TIMES A DAY. MAXIMUM 3 IN 24 HOURS 84 TABLET
  11. DEXAMETHASONE [Concomitant]
     Active Substance: DEXAMETHASONE
     Dosage: 4 MG, 1X/DAY FOR 3 DAYS POST CHEMOTHERAPY
  12. FILGRASTIM [Concomitant]
     Active Substance: FILGRASTIM
     Dosage: 480 MG
     Route: 058

REACTIONS (1)
  - Neutropenic sepsis [Unknown]
